FAERS Safety Report 10331151 (Version 1)
Quarter: 2014Q3

REPORT INFORMATION
  Report Type: Spontaneous
  Country: TR (occurrence: TR)
  Receive Date: 20140722
  Receipt Date: 20140722
  Transmission Date: 20150326
  Serious: Yes (Hospitalization)
  Sender: FDA-Public Use
  Company Number: TR-NOVOPROD-416518

PATIENT
  Sex: Male
  Weight: 2.7 kg

DRUGS (2)
  1. LEVEMIR [Suspect]
     Active Substance: INSULIN DETEMIR
     Indication: GESTATIONAL DIABETES
     Dosage: 16 IU, QD
     Route: 064
     Dates: start: 20140402, end: 20140608
  2. OKSAPAR [Concomitant]
     Dosage: 1X1
     Route: 064
     Dates: start: 20140402, end: 20140608

REACTIONS (3)
  - Foetal exposure during pregnancy [Recovered/Resolved]
  - Bronchiolitis [Unknown]
  - Poor weight gain neonatal [Unknown]

NARRATIVE: CASE EVENT DATE: 20140402
